FAERS Safety Report 14431021 (Version 2)
Quarter: 2018Q1

REPORT INFORMATION
  Report Type: Spontaneous
  Country: IT (occurrence: IT)
  Receive Date: 20180124
  Receipt Date: 20180124
  Transmission Date: 20180509
  Serious: Yes (Hospitalization)
  Sender: FDA-Public Use
  Company Number: IT-CONCORDIA PHARMACEUTICALS INC.-E2B_00009535

PATIENT
  Age: 77 Year
  Sex: Male

DRUGS (8)
  1. COUMADIN [Concomitant]
     Active Substance: WARFARIN SODIUM
     Indication: ATRIAL FIBRILLATION
  2. LASIX [Concomitant]
     Active Substance: FUROSEMIDE
     Indication: DIURETIC THERAPY
     Route: 048
  3. CRESTOR 10 MG COMPRESSE RIVESTITE CON FILM [Concomitant]
     Indication: HYPERCHOLESTEROLAEMIA
     Route: 048
  4. BISOPROLOL [Suspect]
     Active Substance: BISOPROLOL
     Indication: ATRIAL FIBRILLATION
     Route: 048
     Dates: end: 20171213
  5. EUTIROX 50 MICROGRAMMI COMPRESSE [Concomitant]
     Indication: HYPOTHYROIDISM
     Route: 048
  6. HUMALOG 100 U/ML, SOLUTION FOR INJECTION IN VIAL [Concomitant]
     Indication: DIABETES MELLITUS
     Route: 058
  7. ENAPREN 20 MG COMPRESSE [Concomitant]
     Indication: HYPERTENSION
     Route: 048
  8. DIGOXIN. [Suspect]
     Active Substance: DIGOXIN
     Indication: ATRIAL FIBRILLATION
     Route: 048

REACTIONS (1)
  - Presyncope [Recovering/Resolving]

NARRATIVE: CASE EVENT DATE: 20171213
